FAERS Safety Report 4676084-2 (Version None)
Quarter: 2005Q2

REPORT INFORMATION
  Report Type: 
  Country: None (occurrence: None)
  Receive Date: 20050527
  Receipt Date: 20050316
  Transmission Date: 20051028
  Serious: No
  Sender: FDA-Public Use
  Company Number: US-GLAXOSMITHKLINE-A0551047A

PATIENT
  Age: 27 Year
  Sex: Female

DRUGS (3)
  1. WELLBUTRIN XL [Suspect]
     Indication: DEPRESSION
     Dosage: 150MG PER DAY
     Route: 048
     Dates: start: 20050221, end: 20050316
  2. ORTHO TRI-CYCLEN [Concomitant]
  3. PERCOCET [Concomitant]

REACTIONS (3)
  - CHEST PAIN [None]
  - PRURITUS [None]
  - URTICARIA [None]
